FAERS Safety Report 8795500 (Version 2)
Quarter: 2012Q4

REPORT INFORMATION
  Report Type: 
  Country: TR (occurrence: TR)
  Receive Date: 20120918
  Receipt Date: 20121112
  Transmission Date: 20130627
  Serious: Yes (Disabling)
  Sender: FDA-Public Use
  Company Number: TR-JNJFOC-20120904309

PATIENT
  Sex: Male

DRUGS (2)
  1. REMICADE [Suspect]
     Indication: ANKYLOSING SPONDYLITIS
     Dosage: 1st infusion
     Route: 042
     Dates: start: 201201
  2. REMICADE [Suspect]
     Indication: ANKYLOSING SPONDYLITIS
     Dosage: 4th infusion
     Route: 042
     Dates: start: 20120503, end: 201207

REACTIONS (5)
  - Walking disability [Not Recovered/Not Resolved]
  - Pain [Not Recovered/Not Resolved]
  - Tachycardia [Not Recovered/Not Resolved]
  - Fatigue [Not Recovered/Not Resolved]
  - Dyspnoea [Not Recovered/Not Resolved]
